FAERS Safety Report 8102158-X (Version None)
Quarter: 2012Q1

REPORT INFORMATION
  Report Type: 
  Country: None (occurrence: None)
  Receive Date: 20120201
  Receipt Date: 20120126
  Transmission Date: 20120608
  Serious: Yes (Hospitalization, Other)
  Sender: FDA-Public Use
  Company Number: US-BIOGENIDEC-2011BI048213

PATIENT
  Age: 69 Year
  Sex: Male

DRUGS (2)
  1. TYSABRI [Suspect]
     Route: 042
     Dates: end: 20120106
  2. TYSABRI [Suspect]
     Indication: MULTIPLE SCLEROSIS
     Route: 042
     Dates: start: 20070124, end: 20111103

REACTIONS (5)
  - DEVICE RELATED INFECTION [None]
  - ESCHERICHIA INFECTION [None]
  - RENAL FAILURE ACUTE [None]
  - BACTERIAL PYELONEPHRITIS [None]
  - SEPTIC SHOCK [None]
